FAERS Safety Report 24354338 (Version 2)
Quarter: 2025Q2

REPORT INFORMATION
  Report Type: Report from Study
  Country: IN (occurrence: None)
  Receive Date: 20240923
  Receipt Date: 20250421
  Transmission Date: 20250716
  Serious: Yes (Other)
  Sender: INCYTE
  Company Number: IN-002147023-NVSC2023IN092479

PATIENT
  Age: 61 Year

DRUGS (5)
  1. RUXOLITINIB [Suspect]
     Active Substance: RUXOLITINIB
     Indication: Primary myelofibrosis
     Dosage: 5 MG, QD
     Route: 065
  2. RUXOLITINIB [Suspect]
     Active Substance: RUXOLITINIB
     Dosage: 5 MG, QD
  3. RUXOLITINIB [Suspect]
     Active Substance: RUXOLITINIB
     Dosage: 5 MG, QD
  4. RUXOLITINIB [Suspect]
     Active Substance: RUXOLITINIB
     Dosage: 5 MG, QD ALTERNATE DAYS
  5. RUXOLITINIB [Suspect]
     Active Substance: RUXOLITINIB
     Dosage: 5 MG, BID

REACTIONS (18)
  - Abdominal discomfort [Recovering/Resolving]
  - C-reactive protein increased [Unknown]
  - Liver disorder [Unknown]
  - Cough [Unknown]
  - Cytopenia [Unknown]
  - Diabetes mellitus [Unknown]
  - Pyrexia [Unknown]
  - Decreased appetite [Unknown]
  - Weight decreased [Unknown]
  - Haemoglobin decreased [Unknown]
  - Splenomegaly [Unknown]
  - Off label use [Unknown]
  - Platelet count decreased [Unknown]
  - Portal hypertension [Unknown]
  - Renal vein thrombosis [Unknown]
  - Dyspnoea [Unknown]
  - Anaemia [Unknown]
  - Tuberculosis [Unknown]
